FAERS Safety Report 4462098-4 (Version None)
Quarter: 2004Q3

REPORT INFORMATION
  Report Type: 
  Country: None (occurrence: None)
  Receive Date: 20040929
  Receipt Date: 20040920
  Transmission Date: 20050211
  Serious: Yes (Hospitalization)
  Sender: FDA-Public Use
  Company Number: DE-ABBOTT-04P-062-0274110-00

PATIENT
  Sex: Female
  Weight: 58 kg

DRUGS (13)
  1. HUMIRA [Suspect]
     Indication: RHEUMATOID ARTHRITIS
     Route: 058
     Dates: start: 20040528, end: 20040609
  2. METHOTREXATE [Suspect]
     Indication: RHEUMATOID ARTHRITIS
     Route: 048
     Dates: start: 19920101
  3. IBUPROFEN [Concomitant]
     Indication: RHEUMATOID ARTHRITIS
     Route: 048
     Dates: start: 20030901
  4. CLOPREDNOL [Concomitant]
     Indication: RHEUMATOID ARTHRITIS
     Route: 048
  5. VIGANTOLETTEN [Concomitant]
     Indication: OSTEOPOROSIS
     Route: 048
  6. FOLIC ACID [Concomitant]
     Indication: VITAMIN SUPPLEMENTATION
     Route: 048
  7. TELMISARTAN [Concomitant]
     Indication: HYPERTENSION
     Route: 048
  8. PROPRANOLOL HYDROCHLORIDE [Concomitant]
     Indication: HYPERTENSION
     Route: 048
  9. CORINFAX UNO [Concomitant]
     Indication: HYPERTENSION
     Route: 048
  10. HCT [Concomitant]
     Indication: HYPERTENSION
     Route: 048
  11. RISEDRONATE SODIUM [Concomitant]
     Indication: OSTEOPOROSIS
     Route: 048
  12. HEPARIN-FRACTION, SODIUM SALT [Concomitant]
     Indication: THROMBOSIS PROPHYLAXIS
     Route: 058
     Dates: start: 20040709
  13. SOBELIN [Concomitant]
     Indication: OSTEOMYELITIS
     Route: 048
     Dates: start: 20040709

REACTIONS (4)
  - FISTULA [None]
  - INFECTION [None]
  - OSTEOMYELITIS ACUTE [None]
  - SEPSIS [None]
